FAERS Safety Report 13679146 (Version 2)
Quarter: 2017Q3

REPORT INFORMATION
  Report Type: Spontaneous
  Country: JP (occurrence: JP)
  Receive Date: 20170622
  Receipt Date: 20170719
  Transmission Date: 20171127
  Serious: Yes (Hospitalization)
  Sender: FDA-Public Use
  Company Number: JP-DSJP-DSJ-2017-118959AA

PATIENT

DRUGS (4)
  1. NU-LOTAN [Concomitant]
     Active Substance: LOSARTAN POTASSIUM
     Indication: CONGESTIVE CARDIOMYOPATHY
     Dosage: 100 MG, QD
     Route: 048
     Dates: start: 19991016
  2. FLUITRAN [Concomitant]
     Active Substance: TRICHLORMETHIAZIDE
     Indication: CONGESTIVE CARDIOMYOPATHY
     Dosage: 2 MG, QD
     Route: 048
     Dates: start: 19991016
  3. LIXIANA TABLETS 60MG [Suspect]
     Active Substance: EDOXABAN TOSYLATE
     Indication: ATRIAL FIBRILLATION
     Dosage: 60 MG, QD
     Route: 048
     Dates: start: 20161222, end: 20170511
  4. ARTIST TABLETS 10MG [Concomitant]
     Active Substance: CARVEDILOL
     Indication: CONGESTIVE CARDIOMYOPATHY
     Dosage: 10 MG, QD
     Route: 048
     Dates: start: 19991016

REACTIONS (1)
  - Embolic stroke [Recovering/Resolving]

NARRATIVE: CASE EVENT DATE: 20170511
